FAERS Safety Report 10453720 (Version 1)
Quarter: 2014Q3

REPORT INFORMATION
  Report Type: Spontaneous
  Country: TR (occurrence: TR)
  Receive Date: 20140915
  Receipt Date: 20140915
  Transmission Date: 20150326
  Serious: Yes (Other)
  Sender: FDA-Public Use
  Company Number: TR-BAXTER-2014BAX053687

PATIENT
  Age: 0 Day
  Sex: Female
  Weight: 2.69 kg

DRUGS (2)
  1. KIOVIG [Suspect]
     Active Substance: HUMAN IMMUNOGLOBULIN G
     Indication: RHESUS INCOMPATIBILITY
     Route: 042
     Dates: start: 20140630, end: 20140630
  2. KIOVIG [Suspect]
     Active Substance: HUMAN IMMUNOGLOBULIN G
     Indication: OFF LABEL USE

REACTIONS (3)
  - Bradycardia [Not Recovered/Not Resolved]
  - Hypotension [Not Recovered/Not Resolved]
  - Cardiac arrest [Not Recovered/Not Resolved]

NARRATIVE: CASE EVENT DATE: 20140630
